FAERS Safety Report 5409413-2 (Version None)
Quarter: 2007Q3

REPORT INFORMATION
  Report Type: 
  Country: None (occurrence: None)
  Receive Date: 20070809
  Receipt Date: 20070807
  Transmission Date: 20080115
  Serious: Yes (Death)
  Sender: FDA-Public Use
  Company Number: US-BRISTOL-MYERS SQUIBB COMPANY-13871272

PATIENT
  Age: 83 Year
  Sex: Male
  Weight: 69 kg

DRUGS (7)
  1. COUMADIN [Suspect]
     Indication: ATRIAL FIBRILLATION
     Route: 048
  2. PLAVIX [Suspect]
     Route: 048
  3. RESTORIL [Concomitant]
     Route: 048
  4. ZOLOFT [Concomitant]
     Route: 048
  5. NITROGLYCERIN SL [Concomitant]
     Route: 060
  6. METFORMIN HCL [Concomitant]
     Route: 048
  7. FUROSEMIDE [Concomitant]
     Route: 048

REACTIONS (1)
  - ACUTE MYOCARDIAL INFARCTION [None]
